FAERS Safety Report 9506961 (Version 3)
Quarter: 2014Q3

REPORT INFORMATION
  Report Type: Spontaneous
  Country: US (occurrence: US)
  Receive Date: 20130909
  Receipt Date: 20140915
  Transmission Date: 20150326
  Serious: Yes (Hospitalization)
  Sender: FDA-Public Use
  Company Number: US-BAYER-2013-104980

PATIENT
  Age: 29 Year
  Sex: Female
  Weight: 77 kg

DRUGS (1)
  1. MIRENA [Suspect]
     Active Substance: LEVONORGESTREL
     Indication: CONTRACEPTION
     Dosage: 20 MCG/24HR, CONT
     Route: 015
     Dates: start: 20080912, end: 20110917

REACTIONS (7)
  - Injury [None]
  - Abdominal pain [None]
  - Uterine perforation [None]
  - Hydrometra [None]
  - Infection [None]
  - Off label use [None]
  - Medical device pain [None]

NARRATIVE: CASE EVENT DATE: 201109
